FAERS Safety Report 10389536 (Version 1)
Quarter: 2014Q3

REPORT INFORMATION
  Report Type: Report from Study
  Country: DE (occurrence: DE)
  Receive Date: 20140818
  Receipt Date: 20140818
  Transmission Date: 20150326
  Serious: Yes (Death, Hospitalization, Other)
  Sender: FDA-Public Use
  Company Number: DE-UCBSA-2014008705

PATIENT
  Sex: Female

DRUGS (21)
  1. CERTOLIZUMAB PEGOL RA [Suspect]
     Active Substance: CERTOLIZUMAB PEGOL
     Indication: RHEUMATOID ARTHRITIS
     Dosage: UNK
     Dates: start: 201203, end: 201301
  2. PREDNISONE. [Suspect]
     Active Substance: PREDNISONE
     Dosage: UNK
  3. PREDNISOLON [Concomitant]
     Active Substance: PREDNISOLONE
     Dosage: 10MG
     Dates: start: 2006
  4. PREDNISOLON [Concomitant]
     Active Substance: PREDNISOLONE
     Dosage: 5 MG, 1-0-1
  5. KALIUM [Concomitant]
     Dosage: 2-2-2
  6. MONO EMBOLEX [Concomitant]
     Dosage: 8000, 1-0-0
  7. TARGIN [Concomitant]
     Active Substance: NALOXONE HYDROCHLORIDE\OXYCODONE HYDROCHLORIDE
  8. CALCIUM CARBONATE. [Concomitant]
     Active Substance: CALCIUM CARBONATE
     Dosage: 1.25 G, 0-0-1
  9. BELOC-ZOC COMP [Concomitant]
     Active Substance: HYDROCHLOROTHIAZIDE\METOPROLOL SUCCINATE
     Dosage: 47.5, 1-0-0
  10. ENBREL [Suspect]
     Active Substance: ETANERCEPT
     Dosage: UNK
     Dates: start: 201302, end: 20130502
  11. DOXEPIN [Concomitant]
     Active Substance: DOXEPIN
  12. MTX [Suspect]
     Active Substance: METHOTREXATE SODIUM
     Dosage: UNK
     Route: 058
     Dates: start: 201007, end: 20130502
  13. L-THYROXIN [Concomitant]
     Active Substance: LEVOTHYROXINE SODIUM
     Dosage: 100, 1-0-0
  14. TORASEMID [Concomitant]
     Active Substance: TORSEMIDE
     Dosage: 5 MG, 1-0-0
  15. FOLSAEURE [Concomitant]
     Active Substance: FOLIC ACID
  16. PANTOZOL [Concomitant]
     Active Substance: PANTOPRAZOLE SODIUM
     Dosage: 40, 1-0-1
  17. SAROTEN [Concomitant]
     Active Substance: AMITRIPTYLINE
     Dosage: 25, 1-0-0
  18. FERRO SANOL [Concomitant]
     Active Substance: FERROUS SULFATE\GLYCINE
     Dosage: 1-1-0
  19. METOPROLOL [Concomitant]
     Active Substance: METOPROLOL
  20. COLECALCIFEROL [Concomitant]
     Active Substance: CHOLECALCIFEROL
     Dosage: 400 IU
  21. FOLIC ACID. [Concomitant]
     Active Substance: FOLIC ACID
     Dosage: 5 X 1 WEEKLY ON MONDAYS

REACTIONS (3)
  - Staphylococcal sepsis [Fatal]
  - Pain [Unknown]
  - Pleural effusion [Unknown]
